FAERS Safety Report 4434415-2 (Version None)
Quarter: 2004Q3

REPORT INFORMATION
  Report Type: 
  Country: None (occurrence: None)
  Receive Date: 20040825
  Receipt Date: 20040812
  Transmission Date: 20050211
  Serious: Yes (Other)
  Sender: FDA-Public Use
  Company Number: 2004056126

PATIENT
  Sex: Female

DRUGS (4)
  1. FOSPHENYTOIN SODIUM [Suspect]
     Indication: CONVULSION
     Dosage: 305 MG (1 IN 24 HR) , ORAL
     Route: 048
     Dates: start: 20040809
  2. OXCARBAZEPINE [Concomitant]
  3. LAMOTRIGINE [Concomitant]
  4. PANTOPRAZOLE [Concomitant]

REACTIONS (2)
  - BLOOD AMYLASE INCREASED [None]
  - LIPASE INCREASED [None]
